FAERS Safety Report 4484954-3 (Version None)
Quarter: 2004Q3

REPORT INFORMATION
  Report Type: 
  Country: None (occurrence: None)
  Receive Date: 20040921
  Receipt Date: 20030110
  Transmission Date: 20050211
  Serious: Yes (Hospitalization)
  Sender: FDA-Public Use
  Company Number: 163-20785-03010164

PATIENT
  Age: 74 Year
  Sex: Male

DRUGS (5)
  1. THALOMID [Suspect]
     Indication: MULTIPLE MYELOMA
     Dosage: 100 MG, QD, ORAL;  150 MG, QD, ORAL;  100 MG, QD, ORAL
     Route: 048
     Dates: start: 20021203, end: 20021217
  2. THALOMID [Suspect]
     Indication: MULTIPLE MYELOMA
     Dosage: 100 MG, QD, ORAL;  150 MG, QD, ORAL;  100 MG, QD, ORAL
     Route: 048
     Dates: start: 20021218, end: 20030102
  3. THALOMID [Suspect]
     Indication: MULTIPLE MYELOMA
     Dosage: 100 MG, QD, ORAL;  150 MG, QD, ORAL;  100 MG, QD, ORAL
     Route: 048
     Dates: start: 20030103, end: 20030108
  4. STEROIDS (CORTICOSTEROID NOS) [Concomitant]
  5. AREDIA [Concomitant]

REACTIONS (4)
  - ERYTHEMA [None]
  - OEDEMA PERIPHERAL [None]
  - PAIN IN EXTREMITY [None]
  - THROMBOSIS [None]
